FAERS Safety Report 9349361 (Version 2)
Quarter: 2013Q2

REPORT INFORMATION
  Report Type: Report from Study
  Country: JP (occurrence: JP)
  Receive Date: 20130614
  Receipt Date: 20130624
  Transmission Date: 20140414
  Serious: Yes (Hospitalization)
  Sender: FDA-Public Use
  Company Number: JP-BAXTER-2013BAX021848

PATIENT
  Age: 46 Year
  Sex: Female

DRUGS (20)
  1. CYCLOPHOSPHAMIDE FOR INJECTION, USP [Suspect]
     Indication: HER-2 POSITIVE BREAST CANCER
     Route: 042
     Dates: start: 20121121
  2. CYCLOPHOSPHAMIDE FOR INJECTION, USP [Suspect]
     Route: 042
     Dates: end: 20130212
  3. PERTUZUMAB [Suspect]
     Indication: HER-2 POSITIVE BREAST CANCER
     Route: 042
     Dates: start: 20130312
  4. PERTUZUMAB [Suspect]
     Route: 042
     Dates: start: 20120423
  5. PERTUZUMAB [Suspect]
     Route: 042
     Dates: start: 20120604
  6. TRASTUZUMAB [Suspect]
     Indication: HER-2 POSITIVE BREAST CANCER
     Route: 042
     Dates: start: 20130312
  7. TRASTUZUMAB [Suspect]
     Route: 042
     Dates: start: 20120423
  8. TRASTUZUMAB [Suspect]
     Route: 042
     Dates: start: 20120604
  9. DOCETAXEL [Suspect]
     Indication: HER-2 POSITIVE BREAST CANCER
     Route: 042
     Dates: start: 20130312
  10. DOCETAXEL [Suspect]
     Route: 042
     Dates: start: 20120423
  11. DOCETAXEL [Suspect]
     Route: 042
     Dates: start: 20120604
  12. FLUOROURACIL [Suspect]
     Indication: HER-2 POSITIVE BREAST CANCER
     Route: 042
     Dates: start: 20121121
  13. FLUOROURACIL [Suspect]
     Route: 042
     Dates: end: 20130212
  14. EPIRUBICIN HYDROCHLORIDE [Suspect]
     Indication: HER-2 POSITIVE BREAST CANCER
     Route: 042
     Dates: start: 20121121
  15. EPIRUBICIN HYDROCHLORIDE [Suspect]
     Route: 042
     Dates: end: 20130212
  16. RABEPRAZOLE SODIUM [Concomitant]
     Indication: PRODUCT USED FOR UNKNOWN INDICATION
     Route: 065
     Dates: start: 20121121
  17. HEPARINOID [Concomitant]
     Indication: PRODUCT USED FOR UNKNOWN INDICATION
     Route: 065
     Dates: start: 20120416
  18. BETAMETHASONE BUTYRATE PROPIONATE [Concomitant]
     Indication: PRODUCT USED FOR UNKNOWN INDICATION
     Route: 065
     Dates: start: 20130501
  19. UREA [Concomitant]
     Indication: PRODUCT USED FOR UNKNOWN INDICATION
     Route: 065
     Dates: start: 20130501
  20. SODIUM GUALENATE [Concomitant]
     Indication: PRODUCT USED FOR UNKNOWN INDICATION
     Route: 065
     Dates: start: 20130415

REACTIONS (1)
  - Calculus ureteric [Recovering/Resolving]
